FAERS Safety Report 8900062 (Version 1)
Quarter: 2012Q4

REPORT INFORMATION
  Report Type: 
  Country: CN (occurrence: CN)
  Receive Date: 20121109
  Receipt Date: 20121109
  Transmission Date: 20130627
  Serious: Yes (Hospitalization, Other)
  Sender: FDA-Public Use
  Company Number: PHHY2012CN101510

PATIENT
  Age: 91 Year
  Sex: Male

DRUGS (6)
  1. EXELON [Suspect]
     Dosage: 6 mg, BID
  2. ASPIRIN [Concomitant]
     Dosage: 100 mg, QD
  3. DIOVAN [Concomitant]
     Dosage: 80 mg, QD
  4. NI FU DA [Concomitant]
     Dosage: 20 mg, BID
  5. IMDUR [Concomitant]
     Dosage: 20 mg, BID
  6. GINKGO BILOBA LEAF EXTRACT [Concomitant]
     Dosage: 2 DF, TID

REACTIONS (16)
  - Coronary artery insufficiency [Recovered/Resolved]
  - Palpitations [Recovered/Resolved]
  - Bundle branch block left [Recovered/Resolved]
  - Atrioventricular block first degree [Recovered/Resolved]
  - Bradycardia [Recovered/Resolved]
  - Hypotension [Recovered/Resolved]
  - Cold sweat [Recovered/Resolved]
  - Dizziness [Recovered/Resolved]
  - Vertigo [Recovered/Resolved]
  - Decreased appetite [Recovered/Resolved]
  - Hyperhidrosis [Recovered/Resolved]
  - Blood pressure increased [Recovered/Resolved]
  - Diarrhoea [Recovered/Resolved]
  - Agitation [Recovered/Resolved]
  - Vomiting [Recovered/Resolved]
  - Nausea [Recovered/Resolved]
